FAERS Safety Report 6899571-5 (Version None)
Quarter: 2010Q3

REPORT INFORMATION
  Report Type: 
  Country: None (occurrence: None)
  Receive Date: 20100729
  Receipt Date: 20100722
  Transmission Date: 20110219
  Serious: Yes (Life-Threatening, Hospitalization)
  Sender: FDA-Public Use
  Company Number: 2010SP031964

PATIENT
  Age: 56 Year
  Sex: Female
  Weight: 79.4 kg

DRUGS (30)
  1. PEG-INTRON [Suspect]
     Indication: HEPATITIS C
     Dosage: 120 MCG;SC
     Route: 058
     Dates: start: 20100528
  2. RIBAVIRIN [Suspect]
     Indication: HEPATITIS C
     Dosage: 1000 MG;QD;PO
     Route: 048
     Dates: start: 20100528
  3. BOCEPREVIR [Suspect]
     Indication: HEPATITIS C
     Dosage: 2400 MG;QD;PO
     Route: 048
     Dates: start: 20100625, end: 20100625
  4. BOCEPREVIR [Suspect]
     Indication: HEPATITIS C
     Dosage: 2400 MG;QD;PO
     Route: 048
     Dates: start: 20100629
  5. SEROQUEL [Suspect]
     Indication: INSOMNIA
     Dosage: 300 MG;HS;PO
     Route: 048
     Dates: start: 20050101, end: 20100603
  6. MORPHINE SULFATE [Suspect]
     Indication: ARTHRALGIA
     Dosage: 1 DF;PRN;PO
     Route: 048
     Dates: start: 20091001
  7. MORPHINE SULFATE [Suspect]
     Indication: PAIN
     Dosage: 1 DF;PRN;PO
     Route: 048
     Dates: start: 20091001
  8. OXYCONTIN [Suspect]
     Indication: ARTHRALGIA
     Dosage: 80 MG;BID;PO
     Route: 048
     Dates: start: 20100101
  9. OXYCONTIN [Suspect]
     Indication: PAIN
     Dosage: 80 MG;BID;PO
     Route: 048
     Dates: start: 20100101
  10. DIAZEPAM [Suspect]
     Indication: OSTEOARTHRITIS
     Dosage: 10 MG;BID;PO
     Route: 048
     Dates: start: 19970101
  11. RANITIDINE [Concomitant]
  12. METHYLIN [Concomitant]
  13. CYMBALTA [Concomitant]
  14. ZOLPIDEM [Concomitant]
  15. SENOKOT [Concomitant]
  16. ATENOLOL [Concomitant]
  17. FLONASE [Concomitant]
  18. CLINDAMYCIN [Concomitant]
  19. CORTISONE [Concomitant]
  20. CARISOPRODOL [Concomitant]
  21. IMITREX [Concomitant]
  22. FEXOFENADINE [Concomitant]
  23. SUDAFED 12 HOUR [Concomitant]
  24. CHLORPROMAZINE [Concomitant]
  25. NASONEX [Concomitant]
  26. BISACODYL [Concomitant]
  27. VITAMIN D [Concomitant]
  28. NEOSPORIN [Concomitant]
  29. VICODIN [Concomitant]
  30. CALADRYL CLEAR [Concomitant]

REACTIONS (8)
  - FALL [None]
  - HEPATITIS C [None]
  - INSOMNIA [None]
  - MULTIPLE DRUG OVERDOSE [None]
  - PAIN [None]
  - SINUS CONGESTION [None]
  - SYNCOPE [None]
  - TOXIC ENCEPHALOPATHY [None]
